FAERS Safety Report 23111575 (Version 2)
Quarter: 2024Q3

REPORT INFORMATION
  Report Type: Spontaneous
  Country: JP (occurrence: JP)
  Receive Date: 20231026
  Receipt Date: 20240801
  Transmission Date: 20241016
  Serious: Yes (Death, Life-Threatening, Other)
  Sender: DAIICHI
  Company Number: JP-DSJP-DSJ-2023-143761

PATIENT
  Age: 34 Year
  Sex: Male
  Weight: 63.5 kg

DRUGS (34)
  1. VANFLYTA [Suspect]
     Active Substance: QUIZARTINIB DIHYDROCHLORIDE
     Indication: Acute myeloid leukaemia
     Dosage: 35.4 MG, QD
     Route: 048
     Dates: start: 20230926, end: 20231009
  2. IDAMYCIN [Suspect]
     Active Substance: IDARUBICIN HYDROCHLORIDE
     Indication: Acute myeloid leukaemia
     Dosage: 12 MG/M2, TID
     Route: 041
     Dates: start: 20230919, end: 20230921
  3. CYTARABINE [Suspect]
     Active Substance: CYTARABINE
     Indication: Acute myeloid leukaemia
     Dosage: 100 MG/M2, 7 TIMES PER DAY
     Route: 041
     Dates: start: 20230919, end: 20230926
  4. MEROPENEM [Concomitant]
     Active Substance: MEROPENEM
     Indication: Pyrexia
     Dosage: 1 G, BID
     Route: 041
     Dates: start: 20230912, end: 20230926
  5. MEROPENEM [Concomitant]
     Active Substance: MEROPENEM
     Indication: Enterocolitis
     Dosage: 1 G, TID
     Route: 041
     Dates: start: 20231006, end: 20231014
  6. FEBUXOSTAT [Concomitant]
     Active Substance: FEBUXOSTAT
     Indication: Tumour lysis syndrome
     Dosage: 60 MG, QD
     Route: 048
     Dates: start: 20230915, end: 20230926
  7. FEBUXOSTAT [Concomitant]
     Active Substance: FEBUXOSTAT
     Indication: Prophylaxis
  8. ACETAMINOPHEN [Concomitant]
     Active Substance: ACETAMINOPHEN
     Indication: Pyrexia
     Dosage: 400 MG, 0-4 TIMES
     Route: 048
     Dates: start: 20230913, end: 20231010
  9. POTASSIUM ASPARTATE [Concomitant]
     Active Substance: POTASSIUM ASPARTATE
     Indication: Hypokalaemia
     Dosage: 300-900MG, 1-3 TIMES
     Route: 048
     Dates: start: 20230925, end: 20231012
  10. NEXIUM [Concomitant]
     Active Substance: ESOMEPRAZOLE MAGNESIUM
     Indication: Prophylaxis against gastrointestinal ulcer
     Dosage: 20 MG, QD
     Route: 048
     Dates: start: 20230915, end: 20230926
  11. FLUCONAZOLE [Concomitant]
     Active Substance: FLUCONAZOLE
     Indication: Systemic mycosis
     Dosage: 200 MG, QD
     Route: 048
     Dates: start: 20230915, end: 20231004
  12. FLUCONAZOLE [Concomitant]
     Active Substance: FLUCONAZOLE
     Indication: Prophylaxis
  13. ESOMEPRAZOLE MAGNESIUM [Concomitant]
     Active Substance: ESOMEPRAZOLE MAGNESIUM
     Indication: Prophylaxis against gastrointestinal ulcer
     Dosage: 20 MG, QD
     Route: 048
     Dates: start: 20230927, end: 20231012
  14. VFEND [Concomitant]
     Active Substance: VORICONAZOLE
     Indication: Systemic mycosis
     Dosage: 100 MG, QD
     Route: 048
     Dates: start: 20231011, end: 20231012
  15. VFEND [Concomitant]
     Active Substance: VORICONAZOLE
     Indication: Prophylaxis
  16. VFEND [Concomitant]
     Active Substance: VORICONAZOLE
     Indication: Systemic mycosis
     Dosage: 200 MG, BID
     Route: 048
     Dates: start: 20231011, end: 20231014
  17. VFEND [Concomitant]
     Active Substance: VORICONAZOLE
     Indication: Prophylaxis
  18. PIPERACILLIN SODIUM\TAZOBACTAM SODIUM [Concomitant]
     Active Substance: PIPERACILLIN SODIUM\TAZOBACTAM SODIUM
     Indication: Enterocolitis
     Dosage: 4.5 G, TID
     Route: 041
     Dates: start: 20230927, end: 20231006
  19. TEICOPLANIN [Concomitant]
     Active Substance: TEICOPLANIN
     Indication: Enterocolitis
     Dosage: 400 MG, QD
     Route: 041
     Dates: start: 20231002, end: 20231013
  20. HUMAN RED BLOOD CELL [Concomitant]
     Active Substance: HUMAN RED BLOOD CELL
     Indication: Product used for unknown indication
     Dosage: 2 UNITS/DAY
     Route: 065
     Dates: start: 20230925, end: 20230925
  21. HUMAN RED BLOOD CELL [Concomitant]
     Active Substance: HUMAN RED BLOOD CELL
     Dosage: 2 UNITS/DAY
     Route: 065
     Dates: start: 20230927, end: 20230927
  22. HUMAN RED BLOOD CELL [Concomitant]
     Active Substance: HUMAN RED BLOOD CELL
     Dosage: 2 UNITS/DAY
     Route: 065
     Dates: start: 20230929, end: 20230929
  23. HUMAN RED BLOOD CELL [Concomitant]
     Active Substance: HUMAN RED BLOOD CELL
     Dosage: 2 UNITS/DAY
     Route: 065
     Dates: start: 20231002, end: 20231002
  24. HUMAN RED BLOOD CELL [Concomitant]
     Active Substance: HUMAN RED BLOOD CELL
     Dosage: 2 UNITS/DAY
     Route: 065
     Dates: start: 20231004, end: 20231004
  25. HUMAN RED BLOOD CELL [Concomitant]
     Active Substance: HUMAN RED BLOOD CELL
     Dosage: 2 UNITS/DAY
     Route: 065
     Dates: start: 20231008, end: 20231008
  26. HUMAN RED BLOOD CELL [Concomitant]
     Active Substance: HUMAN RED BLOOD CELL
     Dosage: 10 UNITS/DAY
     Route: 065
     Dates: start: 20231014, end: 20231014
  27. PLATELETS [Concomitant]
     Active Substance: HUMAN PLATELET, ALLOGENIC
     Indication: Product used for unknown indication
     Dosage: 10-20 UNITS/DAY
     Route: 065
     Dates: start: 20230926, end: 20230926
  28. PLATELETS [Concomitant]
     Active Substance: HUMAN PLATELET, ALLOGENIC
     Dosage: 10-20 UNITS/DAY
     Route: 065
     Dates: start: 20230929, end: 20230929
  29. PLATELETS [Concomitant]
     Active Substance: HUMAN PLATELET, ALLOGENIC
     Dosage: 10-20 UNITS/DAY
     Route: 065
     Dates: start: 20231002, end: 20231002
  30. PLATELETS [Concomitant]
     Active Substance: HUMAN PLATELET, ALLOGENIC
     Dosage: 10-20 UNITS/DAY
     Route: 065
     Dates: start: 20231006, end: 20231006
  31. PLATELETS [Concomitant]
     Active Substance: HUMAN PLATELET, ALLOGENIC
     Dosage: 10-20 UNITS/DAY
     Route: 065
     Dates: start: 20231013, end: 20231013
  32. PLATELETS [Concomitant]
     Active Substance: HUMAN PLATELET, ALLOGENIC
     Dosage: 10-20 UNITS/DAY
     Route: 065
     Dates: start: 20231014, end: 20231014
  33. FRESH FROZEN PLASMA [Concomitant]
     Active Substance: HUMAN PLASMA
     Indication: Product used for unknown indication
     Dosage: 20 UNITS/DAY
     Route: 065
     Dates: start: 20230924, end: 20231014
  34. ALBUMIN HUMAN [Concomitant]
     Active Substance: ALBUMIN HUMAN
     Indication: Product used for unknown indication
     Dosage: 25G/DAY
     Route: 065
     Dates: start: 20231013, end: 20231014

REACTIONS (6)
  - Shock [Fatal]
  - Acute respiratory distress syndrome [Fatal]
  - Hypotension [Not Recovered/Not Resolved]
  - Anorectal infection [Not Recovered/Not Resolved]
  - Disseminated intravascular coagulation [Not Recovered/Not Resolved]
  - Neutrophil count decreased [Recovering/Resolving]

NARRATIVE: CASE EVENT DATE: 20230101
